FAERS Safety Report 7322762-6 (Version None)
Quarter: 2011Q1

REPORT INFORMATION
  Report Type: 
  Country: None (occurrence: None)
  Receive Date: 20110301
  Receipt Date: 20110215
  Transmission Date: 20110831
  Serious: Yes (Life-Threatening)
  Sender: FDA-Public Use
  Company Number: US-CELGENEUS-163-21880-11020814

PATIENT
  Weight: 56.1 kg

DRUGS (12)
  1. MAGNESIUM OXIDE [Concomitant]
     Route: 065
  2. MEPRON [Concomitant]
     Route: 065
  3. VELCADE [Suspect]
     Indication: MULTIPLE MYELOMA
     Dosage: 1.3 MILLIGRAM/SQ. METER
     Route: 051
     Dates: start: 20101004, end: 20101203
  4. MELPHALAN [Suspect]
     Indication: MULTIPLE MYELOMA
     Dosage: 165 MILLIGRAM
     Route: 065
     Dates: start: 20110116, end: 20110117
  5. ZYPREXA [Concomitant]
     Route: 065
  6. DEXAMETHASONE [Suspect]
     Indication: MULTIPLE MYELOMA
     Route: 065
  7. REVLIMID [Suspect]
     Indication: MULTIPLE MYELOMA
     Dosage: 25 MILLIGRAM
     Route: 048
     Dates: start: 20101004, end: 20101206
  8. FOLATE [Concomitant]
     Route: 065
  9. ZOFRAN [Concomitant]
     Route: 065
  10. MULTI-VITAMIN [Concomitant]
     Route: 065
  11. ACYCLOVIR [Concomitant]
     Route: 065
  12. ATIVAN [Concomitant]
     Route: 065

REACTIONS (1)
  - PANCYTOPENIA [None]
